FAERS Safety Report 8869157 (Version 1)
Quarter: 2012Q4

REPORT INFORMATION
  Report Type: 
  Country: US (occurrence: US)
  Receive Date: 20121023
  Receipt Date: 20121023
  Transmission Date: 20130627
  Serious: No
  Sender: FDA-Public Use
  Company Number: US-AMGEN-USASP2012043587

PATIENT
  Age: 59 Year
  Sex: Male
  Weight: 87.08 kg

DRUGS (10)
  1. ENBREL [Suspect]
     Indication: PSORIASIS
     Dosage: 50 mg, 2 times/wk
     Route: 058
     Dates: start: 20120216, end: 201205
  2. RIBAVIRIN [Concomitant]
     Indication: HEPATITIS C
     Dosage: 600 mg, qhs
     Route: 048
     Dates: start: 201109
  3. PEGASYS [Concomitant]
     Indication: HEPATITIS C
     Dosage: UNK UNK, qwk
     Route: 058
     Dates: start: 201109, end: 201111
  4. INCIVEK [Concomitant]
     Indication: HEPATITIS C
     Dosage: UNK UNK, tid
     Route: 048
     Dates: start: 201109
  5. TOPIRAMATE [Concomitant]
     Indication: DEPRESSION
     Dosage: 25 mg, qhs
     Route: 048
     Dates: start: 201201, end: 201206
  6. AMBIEN [Concomitant]
     Dosage: 10 mg, qhs
     Route: 048
  7. NORVASC [Concomitant]
     Indication: HYPERTENSION
     Dosage: 10 mg, qd
     Route: 048
     Dates: end: 20120522
  8. ZOLPIDEM TARTRATE [Concomitant]
     Dosage: 10 mg, qhs
     Route: 048
  9. BUSPIRONE HCL [Concomitant]
     Dosage: 15 mg, bid
     Route: 048
  10. CITALOPRAM HYDROBROMIDE [Concomitant]
     Dosage: 10 mg, qd
     Route: 048

REACTIONS (1)
  - Therapeutic response decreased [Unknown]
